FAERS Safety Report 23878938 (Version 1)
Quarter: 2024Q2

REPORT INFORMATION
  Report Type: Spontaneous
  Country: AU (occurrence: None)
  Receive Date: 20240521
  Receipt Date: 20240521
  Transmission Date: 20240716
  Serious: Yes (Death)
  Sender: FDA-Public Use
  Company Number: 2024A115782

PATIENT
  Age: 86 Year
  Sex: Male

DRUGS (1)
  1. DAPAGLIFLOZIN [Suspect]
     Active Substance: DAPAGLIFLOZIN
     Indication: Hyperglycaemia
     Route: 048
     Dates: end: 20240309

REACTIONS (2)
  - Diabetic ketoacidosis [Fatal]
  - Urosepsis [Fatal]

NARRATIVE: CASE EVENT DATE: 20240101
